FAERS Safety Report 9194252 (Version 1)
Quarter: 2013Q1

REPORT INFORMATION
  Report Type: Spontaneous
  Country: US (occurrence: US)
  Receive Date: 20130327
  Receipt Date: 20130327
  Transmission Date: 20140127
  Serious: Yes (Hospitalization)
  Sender: FDA-Public Use
  Company Number: PHHY2013US029116

PATIENT
  Age: 79 Year
  Sex: Female

DRUGS (2)
  1. ENOXAPARIN SODIUM [Suspect]
     Indication: ANTICOAGULANT THERAPY
     Dosage: 90 MG, BID
     Route: 058
  2. ASPIRIN [Concomitant]
     Indication: ANTICOAGULANT THERAPY

REACTIONS (6)
  - Compartment syndrome [Recovering/Resolving]
  - Local swelling [Recovering/Resolving]
  - Pain in extremity [Recovering/Resolving]
  - Abasia [Recovering/Resolving]
  - Ecchymosis [Recovering/Resolving]
  - Haematoma [Recovering/Resolving]
